FAERS Safety Report 5683145-8 (Version None)
Quarter: 2008Q1

REPORT INFORMATION
  Report Type: 
  Country: None (occurrence: None)
  Receive Date: 20080327
  Receipt Date: 20080319
  Transmission Date: 20080703
  Serious: Yes (Other)
  Sender: FDA-Public Use
  Company Number: VE-GENENTECH-255893

PATIENT
  Age: 39 Year
  Sex: Male

DRUGS (3)
  1. AVASTIN [Suspect]
     Indication: DIABETIC RETINOPATHY
     Dosage: 1.25 MG, SINGLE
     Route: 031
  2. TOPICAL ANTIBIOTICS (UNK INGREDIENTS) [Concomitant]
     Indication: DRUG USE FOR UNKNOWN INDICATION
  3. INSULIN [Concomitant]
     Indication: TYPE 1 DIABETES MELLITUS

REACTIONS (1)
  - RETINAL DETACHMENT [None]
